FAERS Safety Report 6912458-4 (Version None)
Quarter: 2010Q3

REPORT INFORMATION
  Report Type: 
  Country: None (occurrence: None)
  Receive Date: 20100806
  Receipt Date: 20080516
  Transmission Date: 20110219
  Serious: No
  Sender: FDA-Public Use
  Company Number: US-PFIZER INC-2008043350

PATIENT
  Age: 45 Year
  Sex: Female
  Weight: 63.5 kg

DRUGS (3)
  1. DETROL LA [Suspect]
     Indication: URINARY INCONTINENCE
     Dates: start: 20080101
  2. ZOLOFT [Concomitant]
     Indication: PERSONALITY CHANGE
  3. ALL OTHER THERAPEUTIC PRODUCTS [Concomitant]
     Indication: MUSCLE SPASMS

REACTIONS (1)
  - DRY MOUTH [None]
